FAERS Safety Report 14619031 (Version 1)
Quarter: 2018Q1

REPORT INFORMATION
  Report Type: Spontaneous
  Country: DE (occurrence: DE)
  Receive Date: 20180309
  Receipt Date: 20180309
  Transmission Date: 20180509
  Serious: Yes (Hospitalization)
  Sender: FDA-Public Use
  Company Number: DE-IPSEN BIOPHARMACEUTICALS, INC.-2018-03730

PATIENT
  Sex: Female

DRUGS (6)
  1. AVASTIN [Suspect]
     Active Substance: BEVACIZUMAB
     Indication: COLORECTAL CANCER
     Route: 042
     Dates: start: 20100308
  2. XELODA [Suspect]
     Active Substance: CAPECITABINE
     Indication: COLORECTAL CANCER
     Route: 048
     Dates: start: 20100101
  3. XELODA [Suspect]
     Active Substance: CAPECITABINE
     Route: 048
     Dates: start: 20100308
  4. OXALIPLATIN. [Suspect]
     Active Substance: OXALIPLATIN
     Indication: PRODUCT USED FOR UNKNOWN INDICATION
     Dates: start: 20100308
  5. PEGYLATED LIPOSOMAL IRINOTECAN [Suspect]
     Active Substance: IRINOTECAN HYDROCHLORIDE
     Indication: COLORECTAL CANCER
     Dosage: NOT REPORTED
     Route: 065
     Dates: start: 20100101
  6. PEGYLATED LIPOSOMAL IRINOTECAN [Suspect]
     Active Substance: IRINOTECAN HYDROCHLORIDE
     Indication: OFF LABEL USE

REACTIONS (2)
  - Off label use [Unknown]
  - Neuralgia [Recovered/Resolved]

NARRATIVE: CASE EVENT DATE: 20100523
